FAERS Safety Report 4561651-7 (Version None)
Quarter: 2005Q1

REPORT INFORMATION
  Report Type: 
  Country: None (occurrence: None)
  Receive Date: 20050124
  Receipt Date: 20050111
  Transmission Date: 20050727
  Serious: Yes (Hospitalization, Other)
  Sender: FDA-Public Use
  Company Number: 2005011965

PATIENT
  Age: 55 Year
  Sex: Female
  Weight: 95.2554 kg

DRUGS (10)
  1. CELEBREX [Suspect]
     Indication: BACK PAIN
     Dates: start: 19960101, end: 20000101
  2. METOPROLOL TARTRATE [Concomitant]
  3. PHENYTOIN SODIUM [Concomitant]
  4. METFORMIN HCL [Concomitant]
  5. LEVOTHYROXINE SODIUM [Concomitant]
  6. GLYBURIDE [Concomitant]
  7. VERAPAMIL [Concomitant]
  8. DEXAMETHASONE [Concomitant]
  9. ESTRADIOL [Concomitant]
  10. PRENATAL VITAMINS (ASCOBIC ACID, BIOTIN, MINERALS NOS, NICOTINIC ACID, [Concomitant]

REACTIONS (9)
  - CARDIAC ENZYMES INCREASED [None]
  - CEREBRAL THROMBOSIS [None]
  - HYPOAESTHESIA [None]
  - LABORATORY TEST ABNORMAL [None]
  - PAIN [None]
  - POST PROCEDURAL COMPLICATION [None]
  - PROTEIN URINE PRESENT [None]
  - PULMONARY THROMBOSIS [None]
  - SWELLING [None]
